FAERS Safety Report 7733566-4 (Version None)
Quarter: 2011Q3

REPORT INFORMATION
  Report Type: 
  Country: None (occurrence: None)
  Receive Date: 20110907
  Receipt Date: 20110824
  Transmission Date: 20111222
  Serious: Yes (Other)
  Sender: FDA-Public Use
  Company Number: CA-ELI_LILLY_AND_COMPANY-CA201108007336

PATIENT
  Sex: Female

DRUGS (9)
  1. ZYPREXA [Suspect]
     Indication: SCHIZOPHRENIA
     Dosage: 7.5 MG, QD
  2. PREMARIN [Concomitant]
  3. VALPROIC ACID [Concomitant]
  4. TRAZODONE HCL [Concomitant]
  5. CLONAZEPAM [Concomitant]
  6. ZYPREXA [Suspect]
     Dosage: 5 MG, QD
  7. CELEXA [Concomitant]
  8. ZYPREXA ZYDIS [Suspect]
     Indication: SCHIZOPHRENIA
     Dosage: 10 MG, QD
  9. ATIVAN [Concomitant]

REACTIONS (4)
  - BLINDNESS UNILATERAL [None]
  - TYPE 1 DIABETES MELLITUS [None]
  - WEIGHT INCREASED [None]
  - DIABETIC KETOACIDOSIS [None]
